FAERS Safety Report 6098970-1 (Version None)
Quarter: 2009Q1

REPORT INFORMATION
  Report Type: 
  Country: None (occurrence: None)
  Receive Date: 20090302
  Receipt Date: 20090219
  Transmission Date: 20090719
  Serious: Yes (Hospitalization)
  Sender: FDA-Public Use
  Company Number: HR-ABBOTT-09P-216-0558323-00

PATIENT
  Age: 22 Year
  Sex: Male
  Weight: 65 kg

DRUGS (11)
  1. ZEMPLAR [Suspect]
     Indication: HYPERPARATHYROIDISM
     Dates: start: 20080120
  2. SEVELAMER HYDROCHLORIDE [Concomitant]
     Indication: DRUG USE FOR UNKNOWN INDICATION
     Route: 048
     Dates: start: 20070322
  3. ESOMEPRAZOLE MAGNESIUM [Concomitant]
     Indication: GASTRITIS EROSIVE
     Route: 048
     Dates: start: 20070322, end: 20080622
  4. ESOMEPRAZOLE MAGNESIUM [Concomitant]
     Route: 048
     Dates: start: 20080623
  5. FOLIC ACID [Concomitant]
     Indication: HYPOVITAMINOSIS
     Route: 048
     Dates: start: 20071109
  6. FOLIC ACID [Concomitant]
     Indication: PROPHYLAXIS
  7. AZITHROMYCIN [Concomitant]
     Indication: BRONCHITIS
     Dates: start: 20080704, end: 20080706
  8. URAPIDIL [Concomitant]
     Indication: HYPERTENSION
     Route: 042
     Dates: start: 20080630, end: 20080630
  9. CEFTRIAXON [Concomitant]
     Indication: BRONCHITIS
     Route: 042
     Dates: start: 20080630, end: 20080704
  10. AMLODIPINE [Concomitant]
     Indication: HYPERTENSION
     Dates: start: 20080630, end: 20080704
  11. BISOPROLOL [Concomitant]
     Indication: HYPERTENSION
     Dates: start: 20080703, end: 20080704

REACTIONS (6)
  - CHEST PAIN [None]
  - CHOKING [None]
  - DYSPNOEA [None]
  - HEADACHE [None]
  - HYPERTENSION [None]
  - PULMONARY OEDEMA [None]
